FAERS Safety Report 9330035 (Version 1)
Quarter: 2013Q2

REPORT INFORMATION
  Report Type: Spontaneous
  Country: DE (occurrence: DE)
  Receive Date: 20130604
  Receipt Date: 20130604
  Transmission Date: 20140414
  Serious: Yes (Death, Congenital Anomaly)
  Sender: FDA-Public Use
  Company Number: DE-TEVA-407363GER

PATIENT
  Sex: Male

DRUGS (2)
  1. AMITRIPTYLINE [Suspect]
     Route: 064
  2. FOLSAN [Concomitant]
     Route: 064

REACTIONS (4)
  - Renal aplasia [Fatal]
  - Adactyly [Not Recovered/Not Resolved]
  - Cataract [Not Recovered/Not Resolved]
  - Limb reduction defect [Not Recovered/Not Resolved]
